FAERS Safety Report 7693144-2 (Version None)
Quarter: 2011Q3

REPORT INFORMATION
  Report Type: 
  Country: None (occurrence: None)
  Receive Date: 20110819
  Receipt Date: 20110816
  Transmission Date: 20111222
  Serious: Yes (Other)
  Sender: FDA-Public Use
  Company Number: BR-PFIZER INC-2011188089

PATIENT
  Age: 60 Year
  Sex: Female

DRUGS (4)
  1. OLCADIL [Concomitant]
     Indication: ANXIETY
     Dosage: UNK
     Dates: start: 20110201
  2. DOGMATIL [Concomitant]
     Indication: DEPRESSION
     Dosage: UNK
  3. PROPRANOLOL [Concomitant]
     Indication: HYPERTENSION
     Dosage: UNK
     Dates: start: 20040101
  4. LYRICA [Suspect]
     Indication: BACK PAIN
     Dosage: 75 MG, 2X/DAY
     Route: 048
     Dates: start: 20110815

REACTIONS (8)
  - SWELLING FACE [None]
  - EYE SWELLING [None]
  - ASTHENIA [None]
  - SOMNOLENCE [None]
  - LACRIMATION INCREASED [None]
  - INSOMNIA [None]
  - TREMOR [None]
  - HALLUCINATION, VISUAL [None]
